FAERS Safety Report 9563845 (Version 1)
Quarter: 2013Q3

REPORT INFORMATION
  Report Type: Spontaneous
  Country: US (occurrence: None)
  Receive Date: 20130926
  Receipt Date: 20130926
  Transmission Date: 20140515
  Serious: Yes (Disabling)
  Sender: FDA-Public Use
  Company Number: None

PATIENT
  Age: 36 Year
  Sex: Female
  Weight: 56.7 kg

DRUGS (1)
  1. LEVAQUIN [Suspect]
     Indication: EAR INFECTION
     Route: 048
     Dates: start: 20130425, end: 20130429

REACTIONS (6)
  - Tendonitis [None]
  - Neuropathy peripheral [None]
  - Fatigue [None]
  - Mental disorder [None]
  - Myalgia [None]
  - Vitamin B12 decreased [None]
